FAERS Safety Report 4853672-1 (Version None)
Quarter: 2005Q4

REPORT INFORMATION
  Report Type: 
  Country: None (occurrence: None)
  Receive Date: 20051214
  Receipt Date: 20051206
  Transmission Date: 20060501
  Serious: Yes (Hospitalization)
  Sender: FDA-Public Use
  Company Number: FR-BRISTOL-MYERS SQUIBB COMPANY-13206487

PATIENT
  Age: 45 Year
  Sex: Male

DRUGS (6)
  1. EFFERALGAN [Suspect]
     Route: 048
     Dates: start: 20050718, end: 20050818
  2. AMIKIN [Suspect]
     Route: 042
     Dates: start: 20050728, end: 20050818
  3. AXEPIM [Suspect]
     Dates: start: 20050728, end: 20050818
  4. MYOLASTAN [Suspect]
     Dates: start: 20050718, end: 20050818
  5. MOPRAL [Suspect]
     Dates: start: 20050718, end: 20050818
  6. BI-PROFENID [Suspect]
     Indication: KNEE OPERATION
     Dates: start: 20050718, end: 20050818

REACTIONS (3)
  - AGRANULOCYTOSIS [None]
  - ALANINE AMINOTRANSFERASE INCREASED [None]
  - ASPARTATE AMINOTRANSFERASE INCREASED [None]
